FAERS Safety Report 5577918-X (Version None)
Quarter: 2007Q4

REPORT INFORMATION
  Report Type: 
  Country: None (occurrence: None)
  Receive Date: 20071231
  Receipt Date: 20071220
  Transmission Date: 20080405
  Serious: Yes (Other)
  Sender: FDA-Public Use
  Company Number: CL-SANOFI-SYNTHELABO-A01200714411

PATIENT
  Age: 58 Year
  Sex: Male

DRUGS (3)
  1. ATENOLOL [Concomitant]
     Indication: HYPERTENSION
     Dosage: 50 MG
     Route: 048
     Dates: start: 20020101
  2. UROXATRAL [Suspect]
     Indication: DYSURIA
     Route: 048
     Dates: start: 20071214, end: 20071218
  3. ASPIRIN [Concomitant]
     Indication: PROPHYLAXIS
     Dosage: 100 MG
     Route: 048
     Dates: start: 20020101

REACTIONS (2)
  - ASTHENIA [None]
  - HYPERTENSION [None]
